FAERS Safety Report 7270184-9 (Version None)
Quarter: 2011Q1

REPORT INFORMATION
  Report Type: 
  Country: None (occurrence: None)
  Receive Date: 20110202
  Receipt Date: 20110120
  Transmission Date: 20110831
  Serious: Yes (Hospitalization, Other)
  Sender: FDA-Public Use
  Company Number: US-ELI_LILLY_AND_COMPANY-US200910007693

PATIENT
  Sex: Female
  Weight: 124.26 kg

DRUGS (18)
  1. HYDROCODONE [Concomitant]
  2. SEROQUEL [Concomitant]
  3. DEPAKOTE [Concomitant]
  4. ZYPREXA [Suspect]
     Dosage: 1 D/F, UNK
     Dates: start: 20010101
  5. SURMONTIL [Concomitant]
  6. ACCUPRIL [Concomitant]
     Dosage: 5 MG, UNK
  7. ZOVIA 1/35E-21 [Concomitant]
  8. LISINOPRIL [Concomitant]
     Dosage: 5 MG, UNKNOWN
  9. FUROSEMIDE [Concomitant]
     Dosage: 20 MG, UNK
  10. ESTROGENS CONJUGATED W/PROGESTERONE [Concomitant]
  11. MECLIZINE [Concomitant]
     Dosage: 25 MG, UNK
  12. LITHIUM [Concomitant]
  13. CLONAZEPAM [Concomitant]
     Dosage: 0.5 MG, UNKNOWN
  14. ZYPREXA [Suspect]
     Dosage: 10 MG, UNKNOWN
     Dates: start: 20030101
  15. CELEXA [Concomitant]
     Dosage: 400 MG, UNK
  16. PROZAC [Concomitant]
  17. HYDROXYZINE PAMOATE [Concomitant]
     Dosage: 25 MG, UNK
  18. SPIRONOLACTONE [Concomitant]
     Dosage: 50 MG, UNKNOWN

REACTIONS (10)
  - GLYCOSURIA [None]
  - HYPERTENSION [None]
  - VISION BLURRED [None]
  - HYPERPHAGIA [None]
  - POLYDIPSIA [None]
  - DEPRESSION [None]
  - WEIGHT INCREASED [None]
  - DIABETES MELLITUS [None]
  - FOOT OPERATION [None]
  - HYPERGLYCAEMIA [None]
